FAERS Safety Report 5863781-6 (Version None)
Quarter: 2008Q3

REPORT INFORMATION
  Report Type: 
  Country: None (occurrence: None)
  Receive Date: 20080828
  Receipt Date: 20050507
  Transmission Date: 20090109
  Serious: Yes (Other)
  Sender: FDA-Public Use
  Company Number: US-BAYER-200830632NA

PATIENT
  Sex: Female

DRUGS (2)
  1. AVELOX [Suspect]
     Indication: BRONCHITIS
     Route: 048
  2. AVELOX [Suspect]
     Route: 048

REACTIONS (2)
  - BRONCHITIS [None]
  - HYPERMETROPIA [None]
